FAERS Safety Report 6273797-6 (Version None)
Quarter: 2009Q3

REPORT INFORMATION
  Report Type: 
  Country: None (occurrence: None)
  Receive Date: 20090720
  Receipt Date: 20090710
  Transmission Date: 20100115
  Serious: Yes (Hospitalization)
  Sender: FDA-Public Use
  Company Number: B0583368A

PATIENT
  Sex: Female

DRUGS (4)
  1. ONDANSETRON HCL [Suspect]
     Dosage: 8MG PER DAY
     Route: 042
     Dates: start: 20081125, end: 20081126
  2. ELOXATIN [Suspect]
     Dosage: 85MGM2 PER DAY
     Route: 042
     Dates: start: 20081126, end: 20081126
  3. GEMCITABINE [Suspect]
     Dosage: 1000MGM2 PER DAY
     Route: 042
     Dates: start: 20081125, end: 20081125
  4. DEXAMETHASONE [Suspect]
     Dosage: 400MG PER DAY
     Route: 042
     Dates: start: 20081125, end: 20081126

REACTIONS (2)
  - ERYTHEMA [None]
  - PRURITUS [None]
